FAERS Safety Report 5122146-5 (Version None)
Quarter: 2006Q4

REPORT INFORMATION
  Report Type: 
  Country: None (occurrence: None)
  Receive Date: 20061004
  Receipt Date: 20061004
  Transmission Date: 20070319
  Serious: Yes (Death, Life-Threatening)
  Sender: FDA-Public Use
  Company Number: None

PATIENT
  Age: 54 Year
  Sex: Female
  Weight: 90.7194 kg

DRUGS (2)
  1. REBIF [Suspect]
     Indication: MULTIPLE SCLEROSIS
     Dosage: 44 MCG 3X WEEK SQ
     Route: 058
     Dates: start: 20050214, end: 20060925
  2. DEPAKOTE [Suspect]
     Indication: CONVULSION
     Dosage: 500 MG 3/DAY PO
     Route: 048
     Dates: start: 20060101, end: 20061002

REACTIONS (2)
  - ACUTE RESPIRATORY DISTRESS SYNDROME [None]
  - PANCREATITIS [None]
